FAERS Safety Report 8800500 (Version 3)
Quarter: 2012Q4

REPORT INFORMATION
  Report Type: 
  Country: JP (occurrence: JP)
  Receive Date: 20120921
  Receipt Date: 20121113
  Transmission Date: 20130627
  Serious: Yes (Other)
  Sender: FDA-Public Use
  Company Number: JP-009507513-1209JPN006408

PATIENT
  Age: 68 Year
  Sex: Female
  Weight: 45 kg

DRUGS (11)
  1. PEGINTRON [Suspect]
     Indication: HEPATITIS C
     Dosage: 1.5 Microgram per kilogram, qw
     Route: 058
     Dates: start: 20120717, end: 20120731
  2. PEGINTRON [Suspect]
     Dosage: 50 Microgram per body, qw
     Route: 058
     Dates: start: 20120807, end: 20120925
  3. REBETOL [Suspect]
     Indication: HEPATITIS C
     Dosage: 400 mg, qd
     Route: 048
     Dates: start: 20120717, end: 20120918
  4. REBETOL [Suspect]
     Dosage: 200 mg, qd
     Route: 048
     Dates: start: 20120919, end: 20120925
  5. TELAVIC [Suspect]
     Indication: HEPATITIS C
     Dosage: 1500 mg, qd
     Route: 048
     Dates: start: 20120717, end: 20120918
  6. NU-LOTAN [Concomitant]
     Indication: HYPERTENSION
     Dosage: 25 mg, qd , Formulation: POR
     Route: 048
  7. PREDONINE [Concomitant]
     Indication: DERMATITIS
     Dosage: 30 mg, qd , Formulation: POR
     Route: 048
     Dates: start: 20120720, end: 20120911
  8. PREDONINE [Concomitant]
     Dosage: 20 mg, qd
     Route: 048
     Dates: start: 20120912, end: 20120918
  9. PREDONINE [Concomitant]
     Dosage: 10 mg, qd
     Route: 048
     Dates: start: 20120919, end: 20120925
  10. GASTER [Concomitant]
     Indication: PROPHYLAXIS
     Dosage: 40 mg, qd Formulation:POR
     Route: 048
     Dates: start: 20120720, end: 20120925
  11. ZYLORIC [Concomitant]
     Indication: HYPERURICAEMIA
     Dosage: 200 mg, qd, Formulation: POR
     Route: 048
     Dates: start: 20120724, end: 20120925

REACTIONS (2)
  - Rash [Recovering/Resolving]
  - Anaemia [Recovered/Resolved]
